FAERS Safety Report 18001021 (Version 3)
Quarter: 2020Q3

REPORT INFORMATION
  Report Type: Spontaneous
  Country: US (occurrence: US)
  Receive Date: 20200709
  Receipt Date: 20200921
  Transmission Date: 20201103
  Serious: Yes (Other)
  Sender: FDA-Public Use
  Company Number: US-PFIZER INC-2020263531

PATIENT
  Age: 51 Year
  Sex: Female

DRUGS (1)
  1. XELJANZ [Suspect]
     Active Substance: TOFACITINIB CITRATE
     Indication: RHEUMATOID ARTHRITIS
     Dosage: 5 MG, 2X/DAY (TAKE 1 TAB BY MOUTH TWICE DAILY)
     Route: 048
     Dates: start: 20180822

REACTIONS (4)
  - Renal failure [Unknown]
  - Arthralgia [Unknown]
  - Condition aggravated [Unknown]
  - Nephropathy [Unknown]

NARRATIVE: CASE EVENT DATE: 201911
